FAERS Safety Report 8961562 (Version 1)
Quarter: 2012Q4

REPORT INFORMATION
  Report Type: 
  Country: HU (occurrence: HU)
  Receive Date: 20121213
  Receipt Date: 20121213
  Transmission Date: 20130627
  Serious: Yes (Hospitalization)
  Sender: FDA-Public Use
  Company Number: HU-ELI_LILLY_AND_COMPANY-HU201212000617

PATIENT
  Age: 78 Year
  Sex: Female

DRUGS (12)
  1. TERIPARATIDE [Suspect]
     Dosage: 20 ug, qd
     Route: 058
     Dates: start: 201006, end: 201209
  2. VEROSPIRON [Concomitant]
     Dosage: UNK, unknown
     Route: 065
  3. FURON [Concomitant]
     Dosage: UNK, unknown
     Route: 065
  4. PANTOPRAZOL [Concomitant]
     Dosage: UNK, unknown
     Route: 065
  5. ATROVENT [Concomitant]
     Dosage: UNK, unknown
     Route: 005
  6. MOVALIS [Concomitant]
     Dosage: UNK, unknown
     Route: 065
  7. CALCIUM [Concomitant]
     Dosage: UNK, unknown
     Route: 065
  8. COVEREX [Concomitant]
     Dosage: UNK, unknown
     Route: 065
  9. LEVITRA [Concomitant]
     Dosage: UNK, unknown
     Route: 065
  10. FRONTIN [Concomitant]
     Dosage: UNK, unknown
     Route: 065
  11. DETRALEX [Concomitant]
     Dosage: UNK, unknown
     Route: 065
  12. MILURIT [Concomitant]
     Dosage: UNK, unknown
     Route: 065

REACTIONS (3)
  - Extravasation blood [Recovered/Resolved]
  - Pain [Unknown]
  - Incorrect drug administration duration [Unknown]
